FAERS Safety Report 12806420 (Version 1)
Quarter: 2016Q4

REPORT INFORMATION
  Report Type: Spontaneous
  Country: US (occurrence: US)
  Receive Date: 20161004
  Receipt Date: 20161004
  Transmission Date: 20170207
  Serious: Yes (Life-Threatening, Hospitalization, Disabling)
  Sender: FDA-Public Use
  Company Number: None

PATIENT
  Age: 61 Year
  Sex: Female
  Weight: 47.22 kg

DRUGS (6)
  1. MAGNESIUM [Concomitant]
     Active Substance: MAGNESIUM
  2. RANITIDINE. [Concomitant]
     Active Substance: RANITIDINE
  3. TYLENOL [Concomitant]
     Active Substance: ACETAMINOPHEN
  4. POTASSIUM [Concomitant]
     Active Substance: POTASSIUM
  5. AMOXICILLIN/CLAVULANATE [Suspect]
     Active Substance: AMOXICILLIN\CLAVULANATE POTASSIUM
     Indication: ANIMAL BITE
     Dosage: ?          QUANTITY:AKING OR , M,;?
     Route: 048
     Dates: start: 20160907, end: 20160910
  6. DIPHEN/ATROP [Concomitant]
     Active Substance: ATROPINE SULFATE\DIPHENOXYLATE

REACTIONS (3)
  - Rash [None]
  - Blister [None]
  - Urticaria [None]

NARRATIVE: CASE EVENT DATE: 20160910
